FAERS Safety Report 17098697 (Version 1)
Quarter: 2019Q4

REPORT INFORMATION
  Report Type: Spontaneous
  Country: US (occurrence: US)
  Receive Date: 20191105
  Receipt Date: 20191105
  Transmission Date: 20200122
  Serious: Yes (Death)
  Sender: FDA-Public Use
  Company Number: None

PATIENT
  Sex: Female

DRUGS (27)
  1. ACYCLOVIR. [Concomitant]
     Active Substance: ACYCLOVIR
  2. FERROUS SULF [Concomitant]
     Active Substance: FERROUS SULFATE
  3. SPIRONOLACT [Concomitant]
     Active Substance: SPIRONOLACTONE
  4. SILDENAFIL 20MG [Suspect]
     Active Substance: SILDENAFIL
     Indication: PULMONARY ARTERIAL HYPERTENSION
     Route: 048
     Dates: start: 20180408, end: 20191031
  5. FUROSEMIDE. [Concomitant]
     Active Substance: FUROSEMIDE
  6. PHYTONADIONE. [Concomitant]
     Active Substance: PHYTONADIONE
  7. PROCHLORPER [Concomitant]
  8. REMODULIN [Concomitant]
     Active Substance: TREPROSTINIL
  9. CALCIUM/D3 [Concomitant]
     Active Substance: CALCIUM\CHOLECALCIFEROL
  10. CLONAZEPAM. [Concomitant]
     Active Substance: CLONAZEPAM
  11. FLUTICASONE. [Concomitant]
     Active Substance: FLUTICASONE
  12. LEVOFLOXACIN. [Concomitant]
     Active Substance: LEVOFLOXACIN
  13. LYRICA [Concomitant]
     Active Substance: PREGABALIN
  14. CYCLOBENZAPR [Concomitant]
     Active Substance: CYCLOBENZAPRINE
  15. CINNAMON. [Concomitant]
     Active Substance: CINNAMON
  16. MERCAPTOPUR [Concomitant]
  17. PREDNISONE. [Concomitant]
     Active Substance: PREDNISONE
  18. URSODIOL. [Concomitant]
     Active Substance: URSODIOL
  19. ALBUTEROL. [Concomitant]
     Active Substance: ALBUTEROL
  20. FLUCONAZOLE. [Concomitant]
     Active Substance: FLUCONAZOLE
  21. POT CL MICRO [Concomitant]
  22. ZOFRAN [Concomitant]
     Active Substance: ONDANSETRON HYDROCHLORIDE
  23. COLACE [Concomitant]
     Active Substance: DOCUSATE SODIUM
  24. FISH OIL [Concomitant]
     Active Substance: FISH OIL
  25. FLUOXETINE [Concomitant]
     Active Substance: FLUOXETINE HYDROCHLORIDE
  26. PREVACID [Concomitant]
     Active Substance: LANSOPRAZOLE
  27. PROZAC [Concomitant]
     Active Substance: FLUOXETINE HYDROCHLORIDE

REACTIONS (1)
  - Death [None]
